FAERS Safety Report 23896740 (Version 1)
Quarter: 2024Q2

REPORT INFORMATION
  Report Type: Spontaneous
  Country: KR (occurrence: KR)
  Receive Date: 20240524
  Receipt Date: 20240524
  Transmission Date: 20240717
  Serious: Yes (Other)
  Sender: FDA-Public Use
  Company Number: KR-CORZA MEDICAL GMBH-2024-KR-002255

PATIENT
  Sex: Male

DRUGS (1)
  1. TACHOSIL [Suspect]
     Active Substance: FIBRINOGEN HUMAN\THROMBIN HUMAN
     Indication: Peyronie^s disease
     Dosage: UNKNOWN
     Route: 065

REACTIONS (2)
  - Subcutaneous haematoma [Recovered/Resolved]
  - Off label use [Unknown]
